FAERS Safety Report 15585440 (Version 2)
Quarter: 2019Q1

REPORT INFORMATION
  Report Type: Spontaneous
  Country: US (occurrence: US)
  Receive Date: 20181102
  Receipt Date: 20190104
  Transmission Date: 20190417
  Serious: No
  Sender: FDA-Public Use
  Company Number: US-ACTELION-A-NJ2018-178609

PATIENT
  Age: 87 Year
  Sex: Female
  Weight: 54.42 kg

DRUGS (5)
  1. OPSUMIT [Suspect]
     Active Substance: MACITENTAN
     Indication: PULMONARY ARTERIAL HYPERTENSION
     Dosage: 10 MG, QD
     Route: 048
     Dates: start: 201808
  2. UPTRAVI [Suspect]
     Active Substance: SELEXIPAG
     Indication: PULMONARY ARTERIAL HYPERTENSION
     Dosage: 1600 MCG, BID
     Route: 048
     Dates: start: 201809
  3. UPTRAVI [Suspect]
     Active Substance: SELEXIPAG
     Dosage: 200 MCG, BID
     Route: 048
  4. XARELTO [Concomitant]
     Active Substance: RIVAROXABAN
  5. OXYGEN. [Concomitant]
     Active Substance: OXYGEN

REACTIONS (9)
  - Fatigue [Not Recovered/Not Resolved]
  - Asthenia [Not Recovered/Not Resolved]
  - Flushing [Unknown]
  - Decreased appetite [Unknown]
  - Oxygen saturation abnormal [Not Recovered/Not Resolved]
  - Weight decreased [Unknown]
  - Erythema [Unknown]
  - Therapeutic response decreased [Not Recovered/Not Resolved]
  - Oedema [Unknown]

NARRATIVE: CASE EVENT DATE: 2018
